FAERS Safety Report 18078464 (Version 5)
Quarter: 2020Q3

REPORT INFORMATION
  Report Type: Report from Study
  Country: None (occurrence: BE)
  Receive Date: 20200727
  Receipt Date: 20200831
  Transmission Date: 20201103
  Serious: Yes (Hospitalization)
  Sender: FDA-Public Use
  Company Number: BE-ABBVIE-20K-013-3498512-00

PATIENT
  Sex: Male

DRUGS (7)
  1. DUODOPA [Suspect]
     Active Substance: CARBIDOPA\LEVODOPA
     Dosage: MD=16ML, CD=5ML/HR DURING 16HRS, ED=6ML
     Route: 050
     Dates: start: 20191106, end: 20191107
  2. DUODOPA [Suspect]
     Active Substance: CARBIDOPA\LEVODOPA
     Dosage: UNKNOWN DOSAGES
     Route: 050
     Dates: start: 20191107, end: 2019
  3. NEURONTIN [Concomitant]
     Active Substance: GABAPENTIN
     Indication: PRODUCT USED FOR UNKNOWN INDICATION
  4. PROLOPA 125 DISP [Concomitant]
     Active Substance: BENSERAZIDE HYDROCHLORIDE\LEVODOPA
     Indication: PARKINSON^S DISEASE
     Dosage: 100MG/25MG; UNIT DOSE: 1 TABLET ,1 TO 2 TIMES A DAY, WHEN FREEZING
     Route: 048
  5. DUODOPA [Suspect]
     Active Substance: CARBIDOPA\LEVODOPA
     Indication: PARKINSON^S DISEASE
     Dosage: UNKNOWN DOSAGES
     Route: 050
     Dates: end: 20191106
  6. PROLOPA HBS [Concomitant]
     Active Substance: BENSERAZIDE\LEVODOPA
     Indication: PARKINSON^S DISEASE
     Dosage: 100MG/25MG; UNIT DOSE: 2 CAPSULES
     Route: 048
  7. DUODOPA [Suspect]
     Active Substance: CARBIDOPA\LEVODOPA
     Dosage: MD=7ML, CD=4ML/HR DURING 16HRS, ED=4ML; ND=2.5ML/HR DURING 8HRS
     Route: 050
     Dates: start: 20200811, end: 20200814

REACTIONS (6)
  - Confusional state [Unknown]
  - Cystitis [Unknown]
  - Intentional medical device removal by patient [Unknown]
  - Cognitive disorder [Unknown]
  - Weight decreased [Unknown]
  - Delirium [Unknown]
